FAERS Safety Report 11661700 (Version 1)
Quarter: 2015Q4

REPORT INFORMATION
  Report Type: Spontaneous
  Country: US (occurrence: US)
  Receive Date: 20151026
  Receipt Date: 20151026
  Transmission Date: 20160304
  Serious: Yes (Death, Other)
  Sender: FDA-Public Use
  Company Number: US-BAYER-2015-445478

PATIENT
  Sex: Male
  Weight: 90.7 kg

DRUGS (1)
  1. CAMPHO-PHENIQUE ANTISEPTIC LIQUID [Suspect]
     Active Substance: CAMPHORATED PHENOL

REACTIONS (6)
  - Visual acuity reduced [None]
  - Head injury [None]
  - Product use issue [None]
  - Fall [None]
  - Cerebrovascular accident [Fatal]
  - Eye operation [None]
